FAERS Safety Report 19496789 (Version 1)
Quarter: 2021Q3

REPORT INFORMATION
  Report Type: Spontaneous
  Country: US (occurrence: US)
  Receive Date: 20210701
  Receipt Date: 20210701
  Transmission Date: 20211014
  Serious: Yes (Other)
  Sender: FDA-Public Use
  Company Number: None

PATIENT
  Age: 28 Year
  Sex: Female
  Weight: 69.85 kg

DRUGS (2)
  1. ETONOGESTREL?ETHINYL ESTRADIOL [Suspect]
     Active Substance: ETHINYL ESTRADIOL\ETONOGESTREL
     Indication: CONTRACEPTION
     Dosage: ?          OTHER FREQUENCY:EVERY28DAYS ;?
     Route: 067
     Dates: start: 20210323, end: 20210609
  2. TRI?SPRINTEC [Suspect]
     Active Substance: ETHINYL ESTRADIOL\NORGESTIMATE
     Indication: CONTRACEPTION
     Dates: start: 20090216, end: 20120323

REACTIONS (2)
  - Mood swings [None]
  - Treatment noncompliance [None]

NARRATIVE: CASE EVENT DATE: 20210609
